FAERS Safety Report 6318959-4 (Version None)
Quarter: 2009Q3

REPORT INFORMATION
  Report Type: 
  Country: None (occurrence: None)
  Receive Date: 20090821
  Receipt Date: 20090331
  Transmission Date: 20100115
  Serious: No
  Sender: FDA-Public Use
  Company Number: US-ABBOTT-09P-163-0565323-00

PATIENT
  Sex: Female
  Weight: 76.726 kg

DRUGS (3)
  1. NIASPAN [Suspect]
     Indication: HIGH DENSITY LIPOPROTEIN DECREASED
     Route: 048
     Dates: start: 20090101, end: 20090322
  2. ATENOLOL [Concomitant]
     Indication: PALPITATIONS
  3. LOVASTATIN [Concomitant]
     Indication: BLOOD CHOLESTEROL INCREASED

REACTIONS (6)
  - CHILLS [None]
  - GENERALISED ERYTHEMA [None]
  - HOT FLUSH [None]
  - INSOMNIA [None]
  - PARAESTHESIA [None]
  - SKIN BURNING SENSATION [None]
